FAERS Safety Report 9764015 (Version 2)
Quarter: 2014Q1

REPORT INFORMATION
  Report Type: Spontaneous
  Country: US (occurrence: US)
  Receive Date: 20131216
  Receipt Date: 20140326
  Transmission Date: 20141002
  Serious: No
  Sender: FDA-Public Use
  Company Number: US-BIOGENIDEC-2013BI116609

PATIENT
  Age: 23 Year
  Sex: Female

DRUGS (2)
  1. TECFIDERA [Suspect]
     Indication: MULTIPLE SCLEROSIS
     Route: 048
     Dates: start: 201306
  2. TECFIDERA [Suspect]
     Indication: MULTIPLE SCLEROSIS
     Route: 048
     Dates: end: 201310

REACTIONS (5)
  - Drug ineffective [Recovered/Resolved]
  - Blindness [Unknown]
  - Hypoaesthesia [Unknown]
  - Asthenia [Unknown]
  - Cognitive disorder [Unknown]
